FAERS Safety Report 8284880 (Version 2)
Quarter: 2013Q1

REPORT INFORMATION
  Report Type: Spontaneous
  Country: US (occurrence: US)
  Receive Date: 20111212
  Receipt Date: 20130320
  Transmission Date: 20140127
  Serious: Yes (Death, Hospitalization, Other)
  Sender: FDA-Public Use
  Company Number: US-ELI_LILLY_AND_COMPANY-US201109007059

PATIENT
  Age: 64 Year
  Sex: Female

DRUGS (16)
  1. FORTEO [Suspect]
     Indication: OSTEOPOROSIS
     Dosage: 20 UG, QD
  2. FORTEO [Suspect]
     Dosage: 20 UG, QD
     Dates: start: 20110819, end: 20110919
  3. FORTEO [Suspect]
     Dosage: 20 UG, QD
     Dates: start: 20110921
  4. FORTEO [Suspect]
     Dosage: 20 UG, QD
  5. CYMBALTA [Suspect]
     Indication: PAIN
     Dosage: 60 MG, QD
     Dates: start: 2010
  6. BABY ASPIRIN [Concomitant]
  7. PLAQUENIL                          /00072602/ [Concomitant]
  8. LEVOTHYROXINE [Concomitant]
  9. LYRICA [Concomitant]
  10. ZOCOR [Concomitant]
  11. TRIPLEX [Concomitant]
  12. CLIMARA [Concomitant]
  13. HYDROCODONE [Concomitant]
  14. IRON [Concomitant]
  15. CALCIUM [Concomitant]
  16. SUMATRIPTAN [Concomitant]
     Indication: MIGRAINE
     Dosage: UNK, PRN

REACTIONS (8)
  - Cerebrovascular accident [Fatal]
  - Haemorrhagic stroke [Recovering/Resolving]
  - Convulsion [Unknown]
  - Head injury [Unknown]
  - Tongue injury [Recovered/Resolved]
  - Fall [Recovered/Resolved]
  - Drug dose omission [Recovered/Resolved]
  - Medication error [Unknown]
